FAERS Safety Report 9257739 (Version 1)
Quarter: 2013Q2

REPORT INFORMATION
  Report Type: Spontaneous
  Country: IT (occurrence: IT)
  Receive Date: 20130426
  Receipt Date: 20130426
  Transmission Date: 20140414
  Serious: Yes (Hospitalization)
  Sender: FDA-Public Use
  Company Number: IT-NOVOPROD-376208

PATIENT
  Age: 53 Year
  Sex: Male

DRUGS (3)
  1. ACTRAPID [Suspect]
     Indication: DIABETES MELLITUS
     Dosage: 60 IU
     Route: 065
     Dates: start: 20130415
  2. PROTIADEN [Concomitant]
     Indication: DEPRESSION
     Dosage: 1 TABLET
     Route: 048
  3. BROMAZEPAM [Concomitant]
     Indication: DEPRESSION

REACTIONS (2)
  - Suicide attempt [Recovered/Resolved]
  - Hypoglycaemia [Recovered/Resolved]
